FAERS Safety Report 4396156-X (Version None)
Quarter: 2004Q3

REPORT INFORMATION
  Report Type: 
  Country: None (occurrence: None)
  Receive Date: 20040707
  Receipt Date: 20040622
  Transmission Date: 20050211
  Serious: Yes (Other)
  Sender: FDA-Public Use
  Company Number: 2004221252FR

PATIENT
  Age: 82 Year
  Sex: Female

DRUGS (8)
  1. XALATAN [Suspect]
     Dosage: OPHTHALMIC
     Route: 047
  2. AZOPT [Concomitant]
  3. MYDRIATICUM ^ROCHE^ (TROPICAMIDE) [Concomitant]
  4. TOBRADEX [Concomitant]
  5. DILTIAZEM HYDROCHLORIDE [Concomitant]
  6. PRACTAZIN (ALTIZIDE) [Concomitant]
  7. SYMBICORT [Concomitant]
  8. INDOCOLLYRE [Concomitant]

REACTIONS (3)
  - CATARACT OPERATION [None]
  - CORNEAL OEDEMA [None]
  - DESCEMET'S MEMBRANE DISORDER [None]
